FAERS Safety Report 16028844 (Version 2)
Quarter: 2019Q1

REPORT INFORMATION
  Report Type: Spontaneous
  Country: KG (occurrence: KG)
  Receive Date: 20190304
  Receipt Date: 20190311
  Transmission Date: 20190418
  Serious: Yes (Death)
  Sender: FDA-Public Use
  Company Number: KG-JNJFOC-20190229615

PATIENT
  Age: 23 Year
  Sex: Male
  Weight: 46 kg

DRUGS (14)
  1. BEDAQUILINE [Suspect]
     Active Substance: BEDAQUILINE
     Indication: TUBERCULOSIS
     Dosage: 200 (DOSE UNITS NOT REPORTED)
     Route: 048
     Dates: start: 20180706, end: 20190207
  2. LINEZOLID. [Suspect]
     Active Substance: LINEZOLID
     Indication: TUBERCULOSIS
     Dosage: 600 (DOSE UNITS NOT REPORTED)
     Route: 065
     Dates: start: 20190213
  3. PROTIONAMIDE [Suspect]
     Active Substance: PROTIONAMIDE
     Indication: TUBERCULOSIS
     Dosage: 750 (DOSE UNITS NOT REPORTED)
     Route: 065
     Dates: start: 20180622, end: 20190207
  4. CLOFAZIMINE [Suspect]
     Active Substance: CLOFAZIMINE
     Indication: TUBERCULOSIS
     Dosage: 200 (DOSE UNITS NOT REPORTED)
     Route: 065
     Dates: start: 20190213
  5. VITAMIN B6 [Concomitant]
     Active Substance: PYRIDOXINE HYDROCHLORIDE
     Indication: PROPHYLAXIS
     Route: 048
     Dates: start: 20180622, end: 20190215
  6. PROTIONAMIDE [Suspect]
     Active Substance: PROTIONAMIDE
     Indication: TUBERCULOSIS
     Dosage: 750 (DOSE UNITS NOT REPORTED)
     Route: 065
     Dates: start: 20190213
  7. LINEZOLID. [Suspect]
     Active Substance: LINEZOLID
     Indication: TUBERCULOSIS
     Dosage: 600 (DOSE UNITS NOT REPORTED)
     Route: 065
     Dates: start: 20180622, end: 20190207
  8. CLOFAZIMINE [Suspect]
     Active Substance: CLOFAZIMINE
     Indication: TUBERCULOSIS
     Dosage: 200 (DOSE UNITS NOT REPORTED)
     Route: 065
     Dates: start: 20180622, end: 20190207
  9. LEVOFLOXACIN. [Suspect]
     Active Substance: LEVOFLOXACIN
     Indication: TUBERCULOSIS
     Dosage: 1000 (DOSE UNITS NOT REPORTED)
     Route: 065
     Dates: start: 20190213
  10. BEDAQUILINE [Suspect]
     Active Substance: BEDAQUILINE
     Indication: TUBERCULOSIS
     Dosage: 400 (DOSE UNITS NOT REPORTED)
     Route: 048
     Dates: start: 20180622, end: 20180706
  11. KANAMYCIN [Suspect]
     Active Substance: KANAMYCIN\KANAMYCIN A SULFATE
     Indication: TUBERCULOSIS
     Dosage: 1000 (DOSE UNITS NOT REPORTED)
     Route: 065
     Dates: start: 20180622, end: 20190207
  12. KANAMYCIN [Suspect]
     Active Substance: KANAMYCIN\KANAMYCIN A SULFATE
     Indication: TUBERCULOSIS
     Dosage: 1000 (DOSE UNITS NOT REPORTED)
     Route: 065
     Dates: start: 20190213
  13. LEVOFLOXACIN. [Suspect]
     Active Substance: LEVOFLOXACIN
     Indication: TUBERCULOSIS
     Dosage: 1000 (DOSE UNITS NOT REPORTED)
     Route: 065
     Dates: start: 20180622, end: 20190207
  14. BEDAQUILINE [Suspect]
     Active Substance: BEDAQUILINE
     Indication: TUBERCULOSIS
     Dosage: 200 (DOSE UNITS NOT REPORTED)
     Route: 048
     Dates: start: 20190213

REACTIONS (6)
  - Pyrexia [Unknown]
  - Anxiety [Unknown]
  - Brain oedema [Fatal]
  - Seizure [Fatal]
  - Blood bilirubin increased [Unknown]
  - Treatment noncompliance [Unknown]

NARRATIVE: CASE EVENT DATE: 20180703
